FAERS Safety Report 8392147-2 (Version None)
Quarter: 2012Q2

REPORT INFORMATION
  Report Type: 
  Country: None (occurrence: None)
  Receive Date: 20120529
  Receipt Date: 20120521
  Transmission Date: 20120825
  Serious: Yes (Other)
  Sender: FDA-Public Use
  Company Number: US-ASTRAZENECA-2011SE14133

PATIENT
  Age: 47 Year
  Sex: Female

DRUGS (1)
  1. SYMBICORT [Suspect]
     Indication: CHRONIC OBSTRUCTIVE PULMONARY DISEASE
     Dosage: 160/4.5 MCG 1 PUFF BID
     Route: 055

REACTIONS (7)
  - NASOPHARYNGITIS [None]
  - MIGRAINE [None]
  - HYPOAESTHESIA [None]
  - NEOPLASM MALIGNANT [None]
  - DIZZINESS [None]
  - COLON CANCER [None]
  - EAR PRURITUS [None]
